FAERS Safety Report 8788413 (Version 1)
Quarter: 2012Q4

REPORT INFORMATION
  Report Type: Report from Study
  Country: US (occurrence: US)
  Receive Date: 20120914
  Receipt Date: 20120914
  Transmission Date: 20130627
  Serious: No
  Sender: FDA-Public Use
  Company Number: US-VERTEX PHARMACEUTICAL INC.-AE-2012-011900

PATIENT
  Age: 40 Year
  Sex: Female

DRUGS (10)
  1. INCIVEK [Suspect]
     Indication: HEPATITIS C
     Route: 048
  2. PEGASYS [Concomitant]
     Indication: HEPATITIS C
  3. RIBAVIRIN [Concomitant]
  4. HYDROCHLOROT [Concomitant]
     Indication: HEPATITIS C
  5. ALLEGRA [Concomitant]
  6. POTASSIUM [Concomitant]
  7. IBUPROFEN [Concomitant]
  8. BENADRYL [Concomitant]
  9. ALBUTEROL [Concomitant]
  10. SPRINTEC [Concomitant]

REACTIONS (4)
  - Influenza like illness [Unknown]
  - Pyrexia [Unknown]
  - Rash [Recovered/Resolved]
  - Red blood cell count decreased [Unknown]
